FAERS Safety Report 10992263 (Version 1)
Quarter: 2015Q2

REPORT INFORMATION
  Report Type: Spontaneous
  Country: TR (occurrence: TR)
  Receive Date: 20150406
  Receipt Date: 20150406
  Transmission Date: 20150821
  Serious: Yes (Other)
  Sender: FDA-Public Use
  Company Number: PHHY2015TR039703

PATIENT
  Age: 80 Year
  Sex: Male

DRUGS (1)
  1. ZOLEDRONATE [Suspect]
     Active Substance: ZOLEDRONIC ACID
     Indication: METASTASES TO BONE
     Dosage: 4 MG, UNK
     Route: 042

REACTIONS (5)
  - Oedema [Unknown]
  - Necrosis [Unknown]
  - Gingival swelling [Unknown]
  - Purulent discharge [Unknown]
  - Osteonecrosis of jaw [Unknown]
